FAERS Safety Report 7380911 (Version 14)
Quarter: 2014Q1

REPORT INFORMATION
  Report Type: Spontaneous
  Country: GB (occurrence: GB)
  Receive Date: 20100507
  Receipt Date: 20140221
  Transmission Date: 20141002
  Serious: Yes (Other)
  Sender: FDA-Public Use
  Company Number: PHHY2010GB28219

PATIENT
  Age: 45 Year
  Sex: Male

DRUGS (5)
  1. CLOZARIL [Suspect]
     Indication: SCHIZOPHRENIA
     Dates: start: 20090122
  2. CLOZARIL [Suspect]
     Dates: start: 20090126
  3. CLOZARIL [Suspect]
     Dosage: 75 MG, BID
     Route: 048
     Dates: start: 20130123
  4. GRANULOCYTE COLONY-STIMULATING FACTOR NOS [Suspect]
     Indication: WHITE BLOOD CELL COUNT DECREASED
     Dosage: 34 MILLION UNITS
  5. NEUPOGEN [Suspect]
     Indication: WHITE BLOOD CELL COUNT DECREASED
     Dosage: 34 MIU, BIW

REACTIONS (5)
  - Chronic hepatitis C [Not Recovered/Not Resolved]
  - Platelet count decreased [Not Recovered/Not Resolved]
  - White blood cell count increased [Unknown]
  - Neutrophil count increased [Unknown]
  - White blood cell count decreased [Recovered/Resolved]
